FAERS Safety Report 7441817-9 (Version None)
Quarter: 2011Q2

REPORT INFORMATION
  Report Type: 
  Country: None (occurrence: None)
  Receive Date: 20110428
  Receipt Date: 20110426
  Transmission Date: 20111010
  Serious: Yes (Hospitalization)
  Sender: FDA-Public Use
  Company Number: DE-ABBOTT-10P-062-0650871-00

PATIENT
  Sex: Female
  Weight: 85 kg

DRUGS (14)
  1. ENHEXAL 10 [Concomitant]
     Indication: PRODUCT USED FOR UNKNOWN INDICATION
  2. EURYTHOX 50 [Concomitant]
     Indication: PRODUCT USED FOR UNKNOWN INDICATION
  3. LODROTRA 5 [Concomitant]
     Indication: PRODUCT USED FOR UNKNOWN INDICATION
  4. PANTOZOL 40 [Concomitant]
     Indication: PRODUCT USED FOR UNKNOWN INDICATION
  5. CALCILAC KT [Concomitant]
     Indication: PRODUCT USED FOR UNKNOWN INDICATION
  6. AMLODIPIN 5 [Concomitant]
     Indication: PRODUCT USED FOR UNKNOWN INDICATION
  7. TOREM 10 [Concomitant]
     Indication: PRODUCT USED FOR UNKNOWN INDICATION
  8. MTX [Concomitant]
  9. HUMIRA [Suspect]
  10. BELOC-ZOK [Concomitant]
     Indication: PRODUCT USED FOR UNKNOWN INDICATION
  11. HUMIRA [Suspect]
     Indication: RHEUMATOID ARTHRITIS
     Route: 058
     Dates: start: 20100322, end: 20100628
  12. TRIAMPUR COMP [Concomitant]
     Indication: PRODUCT USED FOR UNKNOWN INDICATION
  13. ENBREL [Concomitant]
     Indication: PRODUCT USED FOR UNKNOWN INDICATION
     Route: 058
  14. MTX [Concomitant]
     Indication: PRODUCT USED FOR UNKNOWN INDICATION
     Route: 058

REACTIONS (8)
  - ARTHRALGIA [None]
  - VERTIGO [None]
  - PAIN [None]
  - ASTHENIA [None]
  - DYSPNOEA [None]
  - ILL-DEFINED DISORDER [None]
  - RHEUMATOID ARTHRITIS [None]
  - PAIN IN EXTREMITY [None]
